FAERS Safety Report 14964844 (Version 1)
Quarter: 2018Q2

REPORT INFORMATION
  Report Type: Spontaneous
  Country: CN (occurrence: CN)
  Receive Date: 20180601
  Receipt Date: 20180601
  Transmission Date: 20180711
  Serious: Yes (Death)
  Sender: FDA-Public Use
  Company Number: CN-ASTRAZENECA-2018SE63224

PATIENT
  Age: 69 Year
  Sex: Male

DRUGS (1)
  1. IRESSA [Suspect]
     Active Substance: GEFITINIB
     Indication: ADENOCARCINOMA
     Route: 048

REACTIONS (6)
  - Pyrexia [Recovered/Resolved]
  - Decreased appetite [Not Recovered/Not Resolved]
  - Palpitations [Not Recovered/Not Resolved]
  - Poor quality sleep [Unknown]
  - Renal disorder [Fatal]
  - Cardiac disorder [Fatal]

NARRATIVE: CASE EVENT DATE: 20180508
